FAERS Safety Report 7041979-1 (Version None)
Quarter: 2010Q4

REPORT INFORMATION
  Report Type: 
  Country: None (occurrence: None)
  Receive Date: 20101013
  Receipt Date: 20100401
  Transmission Date: 20110411
  Serious: No
  Sender: FDA-Public Use
  Company Number: US-ASTRAZENECA-2010SE14468

PATIENT
  Sex: Male

DRUGS (2)
  1. SYMBICORT [Suspect]
     Dosage: 160/4.5
     Route: 055
     Dates: start: 20090101
  2. SYMBICORT [Suspect]
     Dosage: 80/4.5, 2 PUFFS
     Route: 055
     Dates: start: 20100322

REACTIONS (2)
  - DYSPHONIA [None]
  - WRONG DRUG ADMINISTERED [None]
